FAERS Safety Report 17982832 (Version 2)
Quarter: 2020Q3

REPORT INFORMATION
  Report Type: Spontaneous
  Country: CA (occurrence: CA)
  Receive Date: 20200706
  Receipt Date: 20200721
  Transmission Date: 20201103
  Serious: Yes (Hospitalization, Other)
  Sender: FDA-Public Use
  Company Number: CA-TEVA-2020-CA-1796615

PATIENT
  Age: 70 Year
  Sex: Male

DRUGS (13)
  1. VINCRISTINE SULPHATE INJECTION?LIQ IV 1MG/ML [Suspect]
     Active Substance: VINCRISTINE SULFATE
     Dosage: SOLUTION INTRAVENOUS, 2 MG
  2. PANTOLOC /01263204/ [Concomitant]
     Active Substance: PANTOPRAZOLE SODIUM
  3. DOXORUBICIN INJECTION [Suspect]
     Active Substance: DOXORUBICIN
     Dosage: SOLUTION INTRAVENOUS
     Route: 065
  4. PROCYTOX 2000MG/VIAL [Suspect]
     Active Substance: CYCLOPHOSPHAMIDE
     Route: 048
  5. VITAMIN B12 [Concomitant]
     Active Substance: CYANOCOBALAMIN
  6. PREGABALIN. [Concomitant]
     Active Substance: PREGABALIN
  7. PROGRAF [Concomitant]
     Active Substance: TACROLIMUS
  8. APO PREDNISONE TAB 50 MG [Suspect]
     Active Substance: PREDNISONE
     Route: 048
  9. FILGRASTIM [Concomitant]
     Active Substance: FILGRASTIM
  10. VITAMIN D [Concomitant]
     Active Substance: VITAMIN D NOS
  11. ASA [Concomitant]
     Active Substance: ASPIRIN
  12. LANTUS [Concomitant]
     Active Substance: INSULIN GLARGINE
  13. RITUXAN SC SINGLE DOSE VIAL ? 120 MG/ML [Suspect]
     Active Substance: RITUXIMAB
     Dosage: SOLUTION SUBCUTANEOUS
     Route: 048

REACTIONS (3)
  - Pyrexia [Unknown]
  - Sepsis [Unknown]
  - Asthenia [Unknown]
